FAERS Safety Report 5328232-9 (Version None)
Quarter: 2007Q2

REPORT INFORMATION
  Report Type: 
  Country: None (occurrence: None)
  Receive Date: 20070514
  Receipt Date: 20070501
  Transmission Date: 20071010
  Serious: Yes (Other)
  Sender: FDA-Public Use
  Company Number: 20007AL001776

PATIENT
  Age: 35 Year
  Sex: Female

DRUGS (3)
  1. GABAPENTIN [Suspect]
     Indication: POST HERPETIC NEURALGIA
     Dosage: BID; PO
     Route: 048
     Dates: start: 20070424, end: 20070424
  2. GABAPENTIN [Suspect]
     Indication: SURGERY
     Dosage: BID; PO
     Route: 048
     Dates: start: 20070424, end: 20070424
  3. ERYTHROMYCIN [Concomitant]

REACTIONS (5)
  - HEADACHE [None]
  - NAUSEA [None]
  - POST HERPETIC NEURALGIA [None]
  - SYNCOPE [None]
  - VOMITING [None]
